FAERS Safety Report 8190284-9 (Version None)
Quarter: 2012Q1

REPORT INFORMATION
  Report Type: 
  Country: None (occurrence: None)
  Receive Date: 20120307
  Receipt Date: 20120224
  Transmission Date: 20120608
  Serious: Yes (Other)
  Sender: FDA-Public Use
  Company Number: BR-ELI_LILLY_AND_COMPANY-BR201202007456

PATIENT
  Sex: Male
  Weight: 65 kg

DRUGS (1)
  1. CIALIS [Suspect]
     Indication: ERECTILE DYSFUNCTION
     Dosage: UNK, QD
     Route: 065
     Dates: start: 20120201

REACTIONS (2)
  - HALLUCINATION [None]
  - INTENTIONAL DRUG MISUSE [None]
